FAERS Safety Report 6371848-1 (Version None)
Quarter: 2009Q3

REPORT INFORMATION
  Report Type: 
  Country: None (occurrence: None)
  Receive Date: 20090923
  Receipt Date: 20090914
  Transmission Date: 20100115
  Serious: Yes (Other)
  Sender: FDA-Public Use
  Company Number: PHHY2009CA37645

PATIENT
  Sex: Female

DRUGS (1)
  1. DIOVAN HCT [Suspect]
     Indication: HYPERTENSION
     Dosage: 1 DF (160/12.5 MG) DAILY
     Route: 048
     Dates: start: 20090825, end: 20090827

REACTIONS (3)
  - FACE OEDEMA [None]
  - RASH [None]
  - SKIN PLAQUE [None]
